FAERS Safety Report 6699102-9 (Version None)
Quarter: 2010Q2

REPORT INFORMATION
  Report Type: 
  Country: None (occurrence: None)
  Receive Date: 20100427
  Receipt Date: 20100416
  Transmission Date: 20101027
  Serious: Yes (Hospitalization)
  Sender: FDA-Public Use
  Company Number: DE-WYE-H14728410

PATIENT
  Sex: Male

DRUGS (10)
  1. RIFUN [Suspect]
     Dosage: OVERDOSE AMOUNT UNKNOWN
     Route: 048
  2. VOLTAREN [Suspect]
     Dosage: OVERDOSE AMOUNT UNKNOWN
  3. SOLIAN [Suspect]
     Dosage: OVERDOSE AMOUNT UNKNOWN
  4. ASPIRIN PLUS C [Suspect]
     Dosage: OVERDOSE AMOUNT UNKNOWN
  5. ACETYLCYSTEINE [Suspect]
     Dosage: OVERDOSE AMOUNT UNKNOWN
  6. EMSER PASTILLEN [Suspect]
     Dosage: OVERDOSE AMOUNT UNKNOWN
  7. ST. JOHN'S WORT [Suspect]
     Dosage: OVERDOSE AMOUNT UNKNOWN
  8. CEPHALEXIN [Suspect]
     Dosage: OVERDOSE AMOUNT UNKNOWN
  9. ZOPICLONE [Suspect]
     Dosage: OVERDOSE AMOUNT UNKNOWN
  10. GARLIC [Suspect]
     Dosage: OVERDOSE AMOUNT UNKNOWN

REACTIONS (4)
  - COMA [None]
  - LEUKOCYTOSIS [None]
  - OVERDOSE [None]
  - PARANOIA [None]
